FAERS Safety Report 9210548 (Version 1)
Quarter: 2013Q2

REPORT INFORMATION
  Report Type: Spontaneous
  Country: US (occurrence: US)
  Receive Date: 20130404
  Receipt Date: 20130404
  Transmission Date: 20140414
  Serious: Yes (Other)
  Sender: FDA-Public Use
  Company Number: US-ASTRAZENECA-2013SE20068

PATIENT
  Sex: Female

DRUGS (2)
  1. ARIMIDEX [Suspect]
     Route: 048
  2. AVANDIA [Suspect]

REACTIONS (4)
  - Neoplasm malignant [Unknown]
  - Local swelling [Unknown]
  - Joint swelling [Unknown]
  - Arthralgia [Unknown]
